FAERS Safety Report 5353901-4 (Version None)
Quarter: 2007Q2

REPORT INFORMATION
  Report Type: 
  Country: None (occurrence: None)
  Receive Date: 20070518
  Receipt Date: 20070226
  Transmission Date: 20071010
  Serious: No
  Sender: FDA-Public Use
  Company Number: TPA2006A01912

PATIENT
  Age: 66 Year
  Sex: Female
  Weight: 55.3388 kg

DRUGS (4)
  1. ROZEREM [Suspect]
     Indication: INSOMNIA
     Dosage: 8 MG, QHS, PER ORAL
     Route: 048
     Dates: start: 20061019
  2. MULTI-VITAMINS [Concomitant]
  3. PHENERGAN [Concomitant]
  4. MEPROBAMATE [Concomitant]

REACTIONS (4)
  - DRUG INEFFECTIVE [None]
  - EAR PAIN [None]
  - HEADACHE [None]
  - INITIAL INSOMNIA [None]
